FAERS Safety Report 8160418-0 (Version None)
Quarter: 2012Q1

REPORT INFORMATION
  Report Type: 
  Country: None (occurrence: None)
  Receive Date: 20120223
  Receipt Date: 20120214
  Transmission Date: 20120608
  Serious: No
  Sender: FDA-Public Use
  Company Number: US-JNJFOC-20111203934

PATIENT
  Sex: Male
  Weight: 79.83 kg

DRUGS (8)
  1. SIMVASTATIN [Concomitant]
     Dates: end: 20110101
  2. LISINOPRIL [Concomitant]
     Indication: CORONARY ARTERY DISEASE
  3. XARELTO [Suspect]
     Indication: ATRIAL FIBRILLATION
     Route: 048
     Dates: start: 20111125, end: 20111127
  4. XARELTO [Suspect]
     Indication: ATRIAL FLUTTER
     Route: 048
     Dates: start: 20111125, end: 20111127
  5. SIMVASTATIN [Concomitant]
     Indication: CORONARY ARTERY DISEASE
  6. IMDUR [Concomitant]
     Indication: CORONARY ARTERY DISEASE
  7. PLAVIX [Concomitant]
     Indication: CORONARY ARTERY DISEASE
  8. AMIODARONE HCL [Concomitant]
     Indication: ATRIAL FIBRILLATION

REACTIONS (1)
  - HALLUCINATION [None]
